FAERS Safety Report 6823416-2 (Version None)
Quarter: 2010Q3

REPORT INFORMATION
  Report Type: 
  Country: None (occurrence: None)
  Receive Date: 20100708
  Receipt Date: 20100623
  Transmission Date: 20110219
  Serious: Yes (Hospitalization)
  Sender: FDA-Public Use
  Company Number: PHHY2010US43632

PATIENT
  Sex: Female
  Weight: 131.52 kg

DRUGS (32)
  1. ZOMETA [Suspect]
     Dosage: UNK
     Dates: start: 20060501, end: 20061023
  2. AREDIA [Suspect]
     Dosage: UNK
     Dates: start: 20041004
  3. PROVERA [Concomitant]
  4. IRON [Concomitant]
  5. ASPIRIN [Concomitant]
  6. NAPROSYN [Concomitant]
  7. FELDENE [Concomitant]
  8. ANACID [Concomitant]
  9. INDOMETHACIN [Concomitant]
  10. TRIPHASIL-21 [Concomitant]
  11. FERROUS SULFATE [Concomitant]
  12. CIMETIDINE [Concomitant]
  13. ZESTRIL [Concomitant]
  14. AMOXICILLIN [Concomitant]
  15. IBUPROFEN [Concomitant]
  16. LISINOPRIL [Concomitant]
  17. DECADRON [Concomitant]
  18. DOXORUBICIN HCL [Concomitant]
  19. VINCRISTINE [Concomitant]
  20. KYTRIL [Concomitant]
  21. ADRIAMYCIN PFS [Concomitant]
  22. RITUXAN [Concomitant]
  23. TYLENOL [Concomitant]
  24. BENADRYL ^PFIZER WARNER-LAMBERT^ [Concomitant]
  25. HYDROCODIN [Concomitant]
  26. TRAZODONE HYDROCHLORIDE [Concomitant]
  27. ZOLOFT [Concomitant]
  28. TORADOL [Concomitant]
  29. DIURETICS [Concomitant]
  30. HYDROCHLOROTHIAZIDE [Concomitant]
  31. MARCAINE [Concomitant]
     Route: 048
  32. EPINEPHRINE [Concomitant]

REACTIONS (22)
  - ABSCESS JAW [None]
  - ACTINOMYCOSIS [None]
  - BONE DISORDER [None]
  - BONE MARROW OEDEMA [None]
  - BONE SWELLING [None]
  - DENTAL CARIES [None]
  - DIZZINESS [None]
  - ERYTHEMA [None]
  - FEELING ABNORMAL [None]
  - IMPAIRED HEALING [None]
  - ORAL CANDIDIASIS [None]
  - ORAL MUCOSAL ERYTHEMA [None]
  - OSTEONECROSIS OF JAW [None]
  - PAIN IN JAW [None]
  - PERIODONTAL DISEASE [None]
  - PULPITIS DENTAL [None]
  - SENSITIVITY OF TEETH [None]
  - TOOTH FRACTURE [None]
  - TOOTH LOSS [None]
  - TOOTHACHE [None]
  - WHITE BLOOD CELL COUNT INCREASED [None]
  - WOUND DEHISCENCE [None]
